FAERS Safety Report 6116674-3 (Version None)
Quarter: 2009Q1

REPORT INFORMATION
  Report Type: 
  Country: None (occurrence: None)
  Receive Date: 20090314
  Receipt Date: 20081204
  Transmission Date: 20090719
  Serious: No
  Sender: FDA-Public Use
  Company Number: US-ABBOTT-08P-163-0491376-00

PATIENT
  Sex: Female

DRUGS (2)
  1. HUMIRA [Suspect]
     Indication: CROHN'S DISEASE
     Dosage: 160 MG DAY ONE
     Dates: start: 20081120, end: 20081120
  2. HUMIRA [Suspect]

REACTIONS (3)
  - DRUG INEFFECTIVE [None]
  - POSTNASAL DRIP [None]
  - SINUS HEADACHE [None]
